FAERS Safety Report 15249826 (Version 1)
Quarter: 2018Q3

REPORT INFORMATION
  Report Type: Spontaneous
  Country: US (occurrence: US)
  Receive Date: 20180716
  Receipt Date: 20180716
  Transmission Date: 20181010
  Serious: No
  Sender: FDA-Public Use
  Company Number: None

PATIENT
  Age: 42 Year
  Sex: Female
  Weight: 76.5 kg

DRUGS (5)
  1. ALBUTEROL. [Concomitant]
     Active Substance: ALBUTEROL
  2. KEFLEX [Concomitant]
     Active Substance: CEPHALEXIN
  3. ONE A DAY PETITES FOR WOMEN [Concomitant]
  4. CEPHALEXIN 500 MG CAPSULE [Suspect]
     Active Substance: CEPHALEXIN
     Indication: URINARY TRACT INFECTION
     Dosage: ?          QUANTITY:1 CAPSULE(S);?
     Route: 048
     Dates: start: 20180714, end: 20180716
  5. IBUPROFEN. [Concomitant]
     Active Substance: IBUPROFEN

REACTIONS (5)
  - Vision blurred [None]
  - Headache [None]
  - Hypoaesthesia [None]
  - Diplopia [None]
  - Paraesthesia [None]

NARRATIVE: CASE EVENT DATE: 20180714
